FAERS Safety Report 21071093 (Version 2)
Quarter: 2022Q4

REPORT INFORMATION
  Report Type: Spontaneous
  Country: US (occurrence: US)
  Receive Date: 20220712
  Receipt Date: 20221005
  Transmission Date: 20230113
  Serious: Yes (Death, Other)
  Sender: FDA-Public Use
  Company Number: US-SA-SAC20220710000033

PATIENT
  Age: 56 Year
  Sex: Male

DRUGS (1)
  1. ZANTAC [Suspect]
     Active Substance: RANITIDINE HYDROCHLORIDE
     Indication: Gastrooesophageal reflux disease
     Dosage: 150MG ,FREQUENCY: OTHER
     Route: 065
     Dates: start: 200801, end: 202001

REACTIONS (2)
  - Hepatic cancer stage II [Fatal]
  - Polycythaemia [Fatal]

NARRATIVE: CASE EVENT DATE: 20200901
